FAERS Safety Report 9113314 (Version 1)
Quarter: 2013Q1

REPORT INFORMATION
  Report Type: Spontaneous
  Country: US (occurrence: US)
  Receive Date: 20130211
  Receipt Date: 20130211
  Transmission Date: 20140127
  Serious: No
  Sender: FDA-Public Use
  Company Number: US-B.I. PHARMACEUTICALS,INC./RIDGEFIELD-2013-BI-03709BP

PATIENT
  Sex: Female
  Weight: 66 kg

DRUGS (3)
  1. PRADAXA [Suspect]
     Indication: ATRIAL FIBRILLATION
     Dosage: 300 MG
     Route: 048
     Dates: start: 20121218
  2. FLECAINIDE [Concomitant]
     Dosage: 300 MG
     Route: 048
  3. METOPROLOL [Concomitant]
     Dosage: 50 MG
     Route: 048

REACTIONS (2)
  - Sensation of foreign body [Not Recovered/Not Resolved]
  - Dysphagia [Not Recovered/Not Resolved]
